FAERS Safety Report 8091129-8 (Version None)
Quarter: 2012Q1

REPORT INFORMATION
  Report Type: 
  Country: None (occurrence: None)
  Receive Date: 20120129
  Receipt Date: 20111025
  Transmission Date: 20120608
  Serious: No
  Sender: FDA-Public Use
  Company Number: US-ABBOTT-11P-163-0868074-00

PATIENT
  Age: 58 Year
  Sex: Female

DRUGS (4)
  1. CORTENEMA [Concomitant]
     Indication: CROHN'S DISEASE
     Dosage: PRN
  2. HUMIRA [Suspect]
     Indication: CROHN'S DISEASE
  3. BONE GROWTH VITAMIN [Concomitant]
     Indication: OSTEOPOROSIS
  4. CALCIUM [Concomitant]
     Indication: PRODUCT USED FOR UNKNOWN INDICATION
     Dosage: DAILY

REACTIONS (1)
  - CROHN'S DISEASE [None]
